FAERS Safety Report 25315549 (Version 3)
Quarter: 2025Q3

REPORT INFORMATION
  Report Type: Report from Study
  Country: US (occurrence: US)
  Receive Date: 20250514
  Receipt Date: 20250809
  Transmission Date: 20251020
  Serious: Yes (Other)
  Sender: ALEXION PHARMACEUTICALS
  Company Number: US-AstraZeneca-CH-00803761A

PATIENT
  Sex: Female

DRUGS (1)
  1. STRENSIQ [Suspect]
     Active Substance: ASFOTASE ALFA
     Indication: Hypophosphatasia
     Dosage: UNK UNK, TIW
     Dates: start: 20250130

REACTIONS (11)
  - Pneumonia [Recovering/Resolving]
  - Gallbladder disorder [Unknown]
  - Injection site irritation [Recovering/Resolving]
  - Rubber sensitivity [Unknown]
  - Fatigue [Recovering/Resolving]
  - Injection site erythema [Recovering/Resolving]
  - Injection site urticaria [Recovering/Resolving]
  - Injection site haemorrhage [Recovering/Resolving]
  - Therapeutic response shortened [Unknown]
  - Abdominal pain upper [Unknown]
  - Muscle spasms [Recovering/Resolving]
